FAERS Safety Report 12951312 (Version 1)
Quarter: 2016Q4

REPORT INFORMATION
  Report Type: Spontaneous
  Country: US (occurrence: US)
  Receive Date: 20161117
  Receipt Date: 20161117
  Transmission Date: 20170207
  Serious: No
  Sender: FDA-Public Use
  Company Number: US-PERRIGO-16US019142

PATIENT
  Sex: Female

DRUGS (3)
  1. BUDESONIDE. [Suspect]
     Active Substance: BUDESONIDE
     Dosage: 3 MG, QOD
     Route: 048
     Dates: start: 201606
  2. BUDESONIDE. [Suspect]
     Active Substance: BUDESONIDE
     Indication: COLITIS MICROSCOPIC
     Dosage: 9 MG, QD
     Route: 048
     Dates: start: 201604, end: 201605
  3. BUDESONIDE. [Suspect]
     Active Substance: BUDESONIDE
     Dosage: 6 MG, QD
     Route: 048
     Dates: start: 201605, end: 201606

REACTIONS (4)
  - Off label use [Unknown]
  - Skin tightness [Unknown]
  - Rash [Unknown]
  - Lacrimation increased [Unknown]

NARRATIVE: CASE EVENT DATE: 201604
